FAERS Safety Report 17169196 (Version 1)
Quarter: 2019Q4

REPORT INFORMATION
  Report Type: Spontaneous
  Country: US (occurrence: US)
  Receive Date: 20191217
  Receipt Date: 20191217
  Transmission Date: 20200122
  Serious: Yes (Disabling, Other)
  Sender: FDA-Public Use
  Company Number: None

PATIENT
  Age: 58 Year
  Sex: Male
  Weight: 99 kg

DRUGS (1)
  1. BEVACIZUMAB 1.25MG/0.05ML 31G INJECTABLE [Suspect]
     Active Substance: BEVACIZUMAB
     Indication: DIABETIC RETINAL OEDEMA
     Dosage: ?          QUANTITY:1 INJECTION(S);OTHER FREQUENCY:SEE NARRATIVE;?
     Route: 047
     Dates: start: 20151109, end: 20170911

REACTIONS (9)
  - Eye pain [None]
  - Vitreous floaters [None]
  - Eye infection [None]
  - Cataract [None]
  - Retinal detachment [None]
  - Photophobia [None]
  - Photopsia [None]
  - Blindness unilateral [None]
  - Inflammation [None]

NARRATIVE: CASE EVENT DATE: 20170911
